FAERS Safety Report 12262814 (Version 3)
Quarter: 2016Q3

REPORT INFORMATION
  Report Type: Spontaneous
  Country: US (occurrence: US)
  Receive Date: 20160413
  Receipt Date: 20160808
  Transmission Date: 20161109
  Serious: Yes (Hospitalization)
  Sender: FDA-Public Use
  Company Number: US-BEH-2016061022

PATIENT
  Age: 14 Year
  Sex: Male
  Weight: 47.17 kg

DRUGS (20)
  1. FISH OIL [Concomitant]
     Active Substance: FISH OIL
  2. PREDNISONE. [Concomitant]
     Active Substance: PREDNISONE
  3. PROCRIT [Concomitant]
     Active Substance: ERYTHROPOIETIN
  4. ACETAMINOPHEN. [Concomitant]
     Active Substance: ACETAMINOPHEN
  5. EPIPEN [Concomitant]
     Active Substance: EPINEPHRINE
  6. IRON [Concomitant]
     Active Substance: IRON
  7. RENOCAPS [Concomitant]
  8. MIRALAX [Concomitant]
     Active Substance: POLYETHYLENE GLYCOL 3350
  9. RENVELA [Concomitant]
     Active Substance: SEVELAMER CARBONATE
  10. LOSARTAN. [Concomitant]
     Active Substance: LOSARTAN
  11. CALCITRIOL. [Concomitant]
     Active Substance: CALCITRIOL
  12. MYCOPHENOLATE [Concomitant]
     Active Substance: MYCOPHENOLIC ACID
  13. NORDITROPIN [Concomitant]
     Active Substance: SOMATROPIN
  14. HIZENTRA [Suspect]
     Active Substance: HUMAN IMMUNOGLOBULIN G
     Indication: COMBINED IMMUNODEFICIENCY
     Dosage: STRENGTH OF DOSAGE FORM: 4GM
     Route: 058
     Dates: start: 20160127
  15. DIPHENHYDRAMINE. [Concomitant]
     Active Substance: DIPHENHYDRAMINE
  16. VITAMIN D [Concomitant]
     Active Substance: CHOLECALCIFEROL
  17. COLACE [Concomitant]
     Active Substance: DOCUSATE SODIUM
  18. RANITIDINE. [Concomitant]
     Active Substance: RANITIDINE
  19. LMX [Concomitant]
     Active Substance: LIDOCAINE
  20. AMLODIPINE [Concomitant]
     Active Substance: AMLODIPINE BESYLATE

REACTIONS (2)
  - Inguinal hernia [Unknown]
  - Inguinal hernia repair [Unknown]

NARRATIVE: CASE EVENT DATE: 20160331
